FAERS Safety Report 25096146 (Version 4)
Quarter: 2025Q3

REPORT INFORMATION
  Report Type: Report from Study
  Country: US (occurrence: US)
  Receive Date: 20250319
  Receipt Date: 20250923
  Transmission Date: 20251021
  Serious: Yes (Other)
  Sender: ABBVIE
  Company Number: US-ABBVIE-6178527

PATIENT
  Sex: Male

DRUGS (2)
  1. SKYRIZI [Suspect]
     Active Substance: RISANKIZUMAB-RZAA
     Indication: Psoriasis
     Route: 058
     Dates: start: 20240313
  2. XANAX [Concomitant]
     Active Substance: ALPRAZOLAM
     Indication: Nervous system disorder

REACTIONS (6)
  - Lower limb fracture [Not Recovered/Not Resolved]
  - Hypertension [Not Recovered/Not Resolved]
  - Psoriasis [Not Recovered/Not Resolved]
  - Pain in extremity [Not Recovered/Not Resolved]
  - Movement disorder [Not Recovered/Not Resolved]
  - Tooth disorder [Not Recovered/Not Resolved]
